FAERS Safety Report 4634428-1 (Version None)
Quarter: 2005Q2

REPORT INFORMATION
  Report Type: 
  Country: None (occurrence: None)
  Receive Date: 20050412
  Receipt Date: 20050331
  Transmission Date: 20051028
  Serious: Yes (Other)
  Sender: FDA-Public Use
  Company Number: 2005052898

PATIENT
  Age: 39 Year
  Sex: Male
  Weight: 58.9676 kg

DRUGS (2)
  1. BENADRYL [Suspect]
     Indication: DERMATITIS CONTACT
     Dosage: 1 KAPSEAL Q2H 4 TIMES THEN 1 6 HRS LATER, ORAL
     Route: 048
     Dates: start: 20050327, end: 20050328
  2. CALAMINE LOTION (BENTONINTE, CALAMINE, GLYCEROL, PHENOL, LIQUEFIED, SO [Suspect]
     Indication: DERMATITIS CONTACT
     Dosage: TOPICAL
     Route: 061

REACTIONS (8)
  - ARTHRALGIA [None]
  - BURNING SENSATION [None]
  - CHEST PAIN [None]
  - GENITAL PAIN [None]
  - PAIN IN EXTREMITY [None]
  - PARAESTHESIA [None]
  - PARALYSIS [None]
  - PRURITUS [None]
